FAERS Safety Report 16806965 (Version 2)
Quarter: 2019Q4

REPORT INFORMATION
  Report Type: Spontaneous
  Country: US (occurrence: US)
  Receive Date: 20190913
  Receipt Date: 20191021
  Transmission Date: 20200122
  Serious: No
  Sender: FDA-Public Use
  Company Number: US-BAUSCH-BL-2019-022545

PATIENT
  Age: 72 Year
  Sex: Female

DRUGS (11)
  1. LIPITOR [Concomitant]
     Active Substance: ATORVASTATIN CALCIUM
     Indication: PRODUCT USED FOR UNKNOWN INDICATION
     Route: 048
  2. FOSAMAX [Concomitant]
     Active Substance: ALENDRONATE SODIUM
     Indication: PRODUCT USED FOR UNKNOWN INDICATION
     Dosage: AS DIRECTED
     Route: 048
  3. SYSTANE BALANCE [Concomitant]
     Active Substance: PROPYLENE GLYCOL
     Indication: PRODUCT USED FOR UNKNOWN INDICATION
  4. VIT D [Concomitant]
     Active Substance: VITAMIN D NOS
     Indication: PRODUCT USED FOR UNKNOWN INDICATION
  5. ATORVASTATIN [Concomitant]
     Active Substance: ATORVASTATIN
     Indication: PRODUCT USED FOR UNKNOWN INDICATION
  6. RESTASIS [Concomitant]
     Active Substance: CYCLOSPORINE
     Indication: PRODUCT USED FOR UNKNOWN INDICATION
  7. ASPIRIN. [Concomitant]
     Active Substance: ASPIRIN
     Indication: PRODUCT USED FOR UNKNOWN INDICATION
  8. CALCIUM PHOSPHATE [Concomitant]
     Active Substance: CALCIUM PHOSPHATE
     Indication: PRODUCT USED FOR UNKNOWN INDICATION
  9. LOTEMAX [Suspect]
     Active Substance: LOTEPREDNOL ETABONATE
     Indication: EYE IRRITATION
     Route: 047
     Dates: start: 20190725, end: 201907
  10. LOTEMAX [Suspect]
     Active Substance: LOTEPREDNOL ETABONATE
     Indication: EYE DISCHARGE
     Route: 047
     Dates: start: 20190801, end: 20190801
  11. LOTEMAX [Suspect]
     Active Substance: LOTEPREDNOL ETABONATE
     Indication: PRODUCT USE IN UNAPPROVED INDICATION

REACTIONS (4)
  - Product use in unapproved indication [Unknown]
  - Condition aggravated [Recovered/Resolved]
  - Eye irritation [Recovered/Resolved]
  - Eye discharge [Recovered/Resolved]

NARRATIVE: CASE EVENT DATE: 201907
